FAERS Safety Report 8977550 (Version 1)
Quarter: 2012Q4

REPORT INFORMATION
  Report Type: 
  Country: JP (occurrence: JP)
  Receive Date: 20121220
  Receipt Date: 20121220
  Transmission Date: 20130627
  Serious: Yes (Other)
  Sender: FDA-Public Use
  Company Number: JP-TEVA-376744ISR

PATIENT
  Age: 59 Year
  Sex: Male

DRUGS (6)
  1. PREDNISOLONE [Suspect]
     Indication: CENTRAL NERVOUS SYSTEM LYMPHOMA
     Dosage: 5 courses (360mg) + 2 additional courses on recurrence
     Route: 065
  2. METHOTREXATE [Suspect]
     Indication: CENTRAL NERVOUS SYSTEM LYMPHOMA
     Dosage: 5 courses (5800mg) + 2 additional courses on recurrence
     Route: 065
  3. CYCLOPHOSPHAMIDE [Suspect]
     Indication: CENTRAL NERVOUS SYSTEM LYMPHOMA
     Dosage: 5 courses (1200mg) + 2 additional courses on recurrence
     Route: 065
  4. DOXORUBICIN [Suspect]
     Indication: CENTRAL NERVOUS SYSTEM LYMPHOMA
     Dosage: 5 courses (80mg) + 2 additional courses on recurrence
     Route: 065
  5. VINCRISTINE [Suspect]
     Indication: CENTRAL NERVOUS SYSTEM LYMPHOMA
     Dosage: 5 courses (2.2mg) + 2 additional courses on recurrence
     Route: 065
  6. RITUXIMAB [Suspect]
     Indication: CENTRAL NERVOUS SYSTEM LYMPHOMA
     Dosage: 2 courses (once a week for 4 weeks) initially + 2 additional courses on recurrence
     Route: 065

REACTIONS (1)
  - Sweat gland tumour [Not Recovered/Not Resolved]
